FAERS Safety Report 11036836 (Version 1)
Quarter: 2015Q2

REPORT INFORMATION
  Report Type: Spontaneous
  Country: US (occurrence: None)
  Receive Date: 20150415
  Receipt Date: 20150415
  Transmission Date: 20150821
  Serious: No
  Sender: FDA-Public Use
  Company Number: None

PATIENT
  Age: 62 Year
  Sex: Female
  Weight: 85.28 kg

DRUGS (15)
  1. COQ10 [Concomitant]
     Active Substance: UBIDECARENONE
  2. MELATONIN [Concomitant]
     Active Substance: MELATONIN
  3. WOBENZYM [Concomitant]
     Active Substance: AMYLASE\BROMELAINS\CHYMOTRYPSIN\PANCRELIPASE\PAPAIN\RUTIN\TRYPSIN
  4. OXYBUTYNIN [Concomitant]
     Active Substance: OXYBUTYNIN
  5. OMEGA-3 ACIDS [Concomitant]
     Active Substance: OMEGA-3 FATTY ACIDS
  6. VENLAFAXINE HCL ER 150 MG KREMERS URBAN [Suspect]
     Active Substance: VENLAFAXINE HYDROCHLORIDE
     Indication: DEPRESSION
     Dosage: 2 TABLETS
     Route: 048
  7. LAMOTRIGINE. [Concomitant]
     Active Substance: LAMOTRIGINE
  8. BUPROPION [Concomitant]
     Active Substance: BUPROPION
  9. SYNTHROID [Concomitant]
     Active Substance: LEVOTHYROXINE SODIUM
  10. CETIRIZINE [Concomitant]
     Active Substance: CETIRIZINE HYDROCHLORIDE
  11. VITAMIN B12 [Concomitant]
     Active Substance: CYANOCOBALAMIN
  12. DOCUSATE [Concomitant]
     Active Substance: DOCUSATE
  13. LANSOPRAZOLE. [Concomitant]
     Active Substance: LANSOPRAZOLE
  14. TRIAMTERENE AND HYDROCHLOROTHIAZIDE [Concomitant]
     Active Substance: HYDROCHLOROTHIAZIDE\TRIAMTERENE
  15. ATORVASTATIN [Concomitant]
     Active Substance: ATORVASTATIN

REACTIONS (5)
  - Medication residue present [None]
  - Product quality issue [None]
  - Drug effect decreased [None]
  - Product solubility abnormal [None]
  - Product substitution issue [None]

NARRATIVE: CASE EVENT DATE: 20150414
